FAERS Safety Report 10997991 (Version 1)
Quarter: 2015Q2

REPORT INFORMATION
  Report Type: Spontaneous
  Country: US (occurrence: US)
  Receive Date: 20150408
  Receipt Date: 20150408
  Transmission Date: 20150821
  Serious: No
  Sender: FDA-Public Use
  Company Number: US-BANPHARM-20153438

PATIENT
  Age: 85 Year
  Sex: Female
  Weight: 68.04 kg

DRUGS (6)
  1. GENUINE BAYER ASPIRIN [Suspect]
     Active Substance: ASPIRIN
  2. ANTIBIOTIC [Suspect]
     Active Substance: UNSPECIFIED INGREDIENT
  3. LOW DOSE ASPIRIN REGIMEN BAYER [Concomitant]
  4. CENTRUM SILVER [Concomitant]
     Active Substance: VITAMINS
  5. LISINOPRIL. [Concomitant]
     Active Substance: LISINOPRIL
  6. ALEVE [Suspect]
     Active Substance: NAPROXEN SODIUM
     Indication: PAIN
     Dosage: ONCE DAILY,
     Route: 048
     Dates: start: 2014, end: 2014

REACTIONS (1)
  - Nightmare [Recovered/Resolved]

NARRATIVE: CASE EVENT DATE: 2014
